FAERS Safety Report 17112445 (Version 1)
Quarter: 2019Q4

REPORT INFORMATION
  Report Type: Spontaneous
  Country: US (occurrence: US)
  Receive Date: 20191112
  Receipt Date: 20191112
  Transmission Date: 20200122
  Serious: Yes (Other)
  Sender: FDA-Public Use
  Company Number: None

PATIENT
  Age: 26 Year
  Sex: Female
  Weight: 46.27 kg

DRUGS (1)
  1. BUPREMORPHINE/NALOXONE [Suspect]
     Active Substance: BUPRENORPHINE\NALOXONE
     Indication: DRUG DEPENDENCE
     Dosage: ?          OTHER DOSE:2 TABLETS;?
     Route: 060
     Dates: start: 20191108

REACTIONS (4)
  - Retching [None]
  - Nausea [None]
  - Vomiting [None]
  - Product taste abnormal [None]

NARRATIVE: CASE EVENT DATE: 20191108
